FAERS Safety Report 16481020 (Version 2)
Quarter: 2019Q3

REPORT INFORMATION
  Report Type: Report from Study
  Country: CH (occurrence: CH)
  Receive Date: 20190626
  Receipt Date: 20190711
  Transmission Date: 20191004
  Serious: No
  Sender: FDA-Public Use
  Company Number: CH-SHIRE-CH201919872

PATIENT

DRUGS (2)
  1. REVESTIVE [Suspect]
     Active Substance: TEDUGLUTIDE
     Indication: ADENOMATOUS POLYPOSIS COLI
     Route: 065
  2. REVESTIVE [Suspect]
     Active Substance: TEDUGLUTIDE
     Indication: SHORT-BOWEL SYNDROME

REACTIONS (5)
  - Unevaluable event [Unknown]
  - Pain [Unknown]
  - Large intestine polyp [Unknown]
  - Weight decreased [Unknown]
  - Urine output decreased [Unknown]
